FAERS Safety Report 5626243-7 (Version None)
Quarter: 2008Q1

REPORT INFORMATION
  Report Type: 
  Country: None (occurrence: None)
  Receive Date: 20080214
  Receipt Date: 20080206
  Transmission Date: 20080703
  Serious: Yes (Hospitalization)
  Sender: FDA-Public Use
  Company Number: B0507997A

PATIENT
  Age: 60 Year
  Sex: Female

DRUGS (3)
  1. AVANDIA [Suspect]
     Route: 065
     Dates: end: 20071201
  2. INSULIN [Concomitant]
  3. HERBAL MEDICATION [Concomitant]

REACTIONS (2)
  - COAGULOPATHY [None]
  - ECCHYMOSIS [None]
